FAERS Safety Report 6937748-0 (Version None)
Quarter: 2010Q3

REPORT INFORMATION
  Report Type: 
  Country: None (occurrence: None)
  Receive Date: 20100820
  Receipt Date: 20100820
  Transmission Date: 20110219
  Serious: Yes (Other)
  Sender: FDA-Public Use
  Company Number: None

PATIENT
  Age: 59 Year
  Sex: Female
  Weight: 81.6475 kg

DRUGS (2)
  1. SAVELLA [Suspect]
     Indication: DEPRESSION
     Dosage: 6.25MG ONCE A DAY (USED FRO 3 DAYS IN MAY)
  2. SAVELLA [Suspect]
     Indication: FIBROMYALGIA
     Dosage: 6.25MG ONCE A DAY (USED FRO 3 DAYS IN MAY)

REACTIONS (4)
  - AGGRESSION [None]
  - ANGER [None]
  - IMPULSE-CONTROL DISORDER [None]
  - SUICIDAL IDEATION [None]
